FAERS Safety Report 8480743-3 (Version None)
Quarter: 2012Q3

REPORT INFORMATION
  Report Type: 
  Country: None (occurrence: None)
  Receive Date: 20120702
  Receipt Date: 20120625
  Transmission Date: 20120928
  Serious: Yes (Hospitalization)
  Sender: FDA-Public Use
  Company Number: JP-ELI_LILLY_AND_COMPANY-JP201206007944

PATIENT
  Age: 74 Year
  Sex: Male

DRUGS (5)
  1. ALIMTA [Suspect]
     Dosage: UNK
     Route: 042
     Dates: end: 20120101
  2. FOLIC ACID [Concomitant]
  3. ALIMTA [Suspect]
     Indication: NON-SMALL CELL LUNG CANCER
     Dosage: 500 MG/M2, UNK
     Route: 042
     Dates: start: 20110308
  4. ALIMTA [Suspect]
     Dosage: UNK
     Route: 042
     Dates: start: 20120101
  5. VITAMIN B-12 [Concomitant]

REACTIONS (1)
  - DUODENAL ULCER [None]
